FAERS Safety Report 23571284 (Version 2)
Quarter: 2024Q2

REPORT INFORMATION
  Report Type: Spontaneous
  Country: US (occurrence: US)
  Receive Date: 20240227
  Receipt Date: 20240412
  Transmission Date: 20240716
  Serious: No
  Sender: FDA-Public Use
  Company Number: US-PFIZER INC-202400049373

PATIENT
  Age: 64 Year
  Sex: Male
  Weight: 72.562 kg

DRUGS (4)
  1. PAXLOVID [Suspect]
     Active Substance: NIRMATRELVIR\RITONAVIR
     Indication: COVID-19 treatment
     Dosage: UNK, AS NEEDED
     Route: 048
     Dates: start: 20240208, end: 20240213
  2. LISINOPRIL [Concomitant]
     Active Substance: LISINOPRIL
     Dates: start: 20230802
  3. MENTHOL [Concomitant]
     Active Substance: MENTHOL
     Indication: Cough
     Dosage: UNK
     Route: 048
     Dates: start: 20240206, end: 20240220
  4. ACETAMINOPHEN [Concomitant]
     Active Substance: ACETAMINOPHEN
     Indication: Pain
     Dosage: UNK
     Route: 048
     Dates: start: 20240208, end: 20240212

REACTIONS (2)
  - COVID-19 [Not Recovered/Not Resolved]
  - Disease recurrence [Not Recovered/Not Resolved]

NARRATIVE: CASE EVENT DATE: 20240218
